FAERS Safety Report 5394472-6 (Version None)
Quarter: 2007Q3

REPORT INFORMATION
  Report Type: 
  Country: None (occurrence: None)
  Receive Date: 20070723
  Receipt Date: 20070330
  Transmission Date: 20080115
  Serious: No
  Sender: FDA-Public Use
  Company Number: US-AMGEN-US217557

PATIENT
  Age: 84 Year
  Sex: Female

DRUGS (8)
  1. VECTIBIX [Suspect]
     Indication: COLORECTAL CANCER
     Route: 065
     Dates: start: 20070220
  2. ZANTAC 150 [Concomitant]
     Route: 065
  3. HYDROCHLOROTHIAZIDE [Concomitant]
     Route: 065
  4. MULTIVITAMIN [Concomitant]
     Route: 065
  5. MYLANTA [Concomitant]
     Route: 065
  6. COMPAZINE [Concomitant]
     Route: 065
  7. IRON [Concomitant]
     Route: 065
  8. MIRALAX [Concomitant]
     Route: 065

REACTIONS (2)
  - RASH ERYTHEMATOUS [None]
  - SECRETION DISCHARGE [None]
